FAERS Safety Report 10153887 (Version 2)
Quarter: 2014Q2

REPORT INFORMATION
  Report Type: Report from Study
  Country: CA (occurrence: CA)
  Receive Date: 20140506
  Receipt Date: 20140603
  Transmission Date: 20141212
  Serious: Yes (Death, Hospitalization, Other)
  Sender: FDA-Public Use
  Company Number: CA-ROCHE-1395455

PATIENT
  Age: 90 Year
  Sex: Female

DRUGS (6)
  1. RANIBIZUMAB [Suspect]
     Indication: AGE-RELATED MACULAR DEGENERATION
     Dosage: LAST DOSE WAS RECEIVED ON 26/FEB/2014.
     Route: 050
     Dates: start: 20090317
  2. ASA [Concomitant]
     Route: 065
     Dates: start: 2001
  3. COUMADINE [Concomitant]
     Route: 065
     Dates: start: 201302
  4. ROSUVASTATIN [Concomitant]
     Route: 065
     Dates: start: 2002
  5. PRALIDOXIME CHLORIDE [Concomitant]
     Dosage: REPORTED AS PRADOX
     Route: 065
     Dates: start: 201104, end: 20130115
  6. FUROSEMIDE [Concomitant]
     Route: 065
     Dates: start: 201209

REACTIONS (3)
  - Cerebrovascular accident [Fatal]
  - Basal ganglia haemorrhage [Unknown]
  - Subarachnoid haemorrhage [Unknown]
